FAERS Safety Report 5674566-8 (Version None)
Quarter: 2008Q1

REPORT INFORMATION
  Report Type: 
  Country: None (occurrence: None)
  Receive Date: 20080319
  Receipt Date: 20080319
  Transmission Date: 20080703
  Serious: Yes (Disabling)
  Sender: FDA-Public Use
  Company Number: None

PATIENT
  Sex: Female
  Weight: 158.759 kg

DRUGS (2)
  1. LYRICA [Suspect]
     Indication: FIBROMYALGIA
     Dosage: 50MG QD PO  : INCREASE TO 50MG BID PO
     Route: 048
     Dates: start: 20080206, end: 20080228
  2. LYRICA [Suspect]
     Indication: FIBROMYALGIA
     Dosage: 50MG QD PO  : INCREASE TO 50MG BID PO
     Route: 048
     Dates: start: 20080220

REACTIONS (8)
  - ABDOMINAL WOUND DEHISCENCE [None]
  - CORNEAL ABRASION [None]
  - CORNEAL DISORDER [None]
  - CORNEAL EROSION [None]
  - EYE DISORDER [None]
  - GAIT DISTURBANCE [None]
  - SWELLING [None]
  - WEIGHT INCREASED [None]
